FAERS Safety Report 5338020-5 (Version None)
Quarter: 2007Q2

REPORT INFORMATION
  Report Type: 
  Country: None (occurrence: None)
  Receive Date: 20070530
  Receipt Date: 20070518
  Transmission Date: 20071010
  Serious: Yes (Hospitalization)
  Sender: FDA-Public Use
  Company Number: PHEH2007US04289

PATIENT
  Age: 84 Year
  Sex: Female

DRUGS (7)
  1. ZELNORM [Suspect]
     Indication: CONSTIPATION
     Dosage: 6 MG, BID
     Route: 048
     Dates: start: 20060816, end: 20070403
  2. NEXIUM [Concomitant]
  3. GLIPIZIDE [Concomitant]
     Indication: DIABETES MELLITUS NON-INSULIN-DEPENDENT
     Dosage: 10 MG, BID
  4. HYDROCHLOROTHIAZIDE [Concomitant]
     Indication: HYPERTENSION
     Dosage: 25 MG, QD
  5. CYPROHEPTADINE HCL [Concomitant]
     Indication: PRURITUS
     Dosage: 4 MG, BID
  6. METOPROLOL SUCCINATE [Concomitant]
     Indication: HYPERTENSION
     Dosage: 25 MG, QD
     Dates: end: 20070201
  7. SIMVASTATIN [Concomitant]
     Indication: HYPERLIPIDAEMIA
     Dosage: 40 MG, QHS

REACTIONS (5)
  - ABDOMINAL DISTENSION [None]
  - ATRIOVENTRICULAR BLOCK [None]
  - CARDIAC PACEMAKER INSERTION [None]
  - DYSPNOEA [None]
  - OEDEMA PERIPHERAL [None]
